FAERS Safety Report 4303577-X (Version None)
Quarter: 2004Q1

REPORT INFORMATION
  Report Type: 
  Country: None (occurrence: None)
  Receive Date: 20040223
  Receipt Date: 20040211
  Transmission Date: 20041129
  Serious: Yes (Hospitalization)
  Sender: FDA-Public Use
  Company Number: US-JNJFOC-20040202825

PATIENT
  Age: 80 Year
  Sex: Male
  Weight: 92.0802 kg

DRUGS (6)
  1. RISPERDAL [Suspect]
     Indication: DEMENTIA ALZHEIMER'S TYPE
     Dosage: ORAL
     Route: 048
     Dates: start: 20040114, end: 20040125
  2. OLANZAPINE [Suspect]
     Indication: DEMENTIA ALZHEIMER'S TYPE
     Dosage: ORAL
     Route: 048
     Dates: start: 20040114, end: 20040125
  3. QUETIAPINE (QUETIAPINE) [Suspect]
     Indication: DEMENTIA ALZHEIMER'S TYPE
     Dosage: ORAL
     Route: 048
     Dates: start: 20040114, end: 20040125
  4. ZIPRASIDONE (ZIPRASIDONE) [Suspect]
     Indication: DEMENTIA ALZHEIMER'S TYPE
     Dosage: ORAL
     Route: 048
     Dates: start: 20040114, end: 20040125
  5. PERPHENAZINE [Suspect]
     Indication: DEMENTIA ALZHEIMER'S TYPE
     Dosage: ORAL
     Route: 048
     Dates: start: 20040114, end: 20040125
  6. LORAZEPAM [Concomitant]

REACTIONS (1)
  - FALL [None]
